FAERS Safety Report 8198351-0 (Version None)
Quarter: 2012Q1

REPORT INFORMATION
  Report Type: 
  Country: None (occurrence: None)
  Receive Date: 20120309
  Receipt Date: 20120104
  Transmission Date: 20120608
  Serious: No
  Sender: FDA-Public Use
  Company Number: US-AMGEN-USASP2012000412

PATIENT
  Sex: Female

DRUGS (3)
  1. VITAMIN D [Concomitant]
     Dosage: UNK
  2. ASPIRIN [Concomitant]
  3. PROLIA [Suspect]
     Indication: OSTEOPOROSIS POSTMENOPAUSAL
     Dosage: UNK
     Dates: start: 20111201

REACTIONS (4)
  - EYE DISORDER [None]
  - ASTHENIA [None]
  - DIZZINESS [None]
  - ABDOMINAL DISCOMFORT [None]
